FAERS Safety Report 10383848 (Version 1)
Quarter: 2014Q3

REPORT INFORMATION
  Report Type: Spontaneous
  Country: US (occurrence: US)
  Receive Date: 20140814
  Receipt Date: 20140814
  Transmission Date: 20150326
  Serious: Yes (Hospitalization, Other)
  Sender: FDA-Public Use
  Company Number: US-ASTRAZENECA-2014SE58339

PATIENT
  Age: 42 Year
  Sex: Female
  Weight: 108.9 kg

DRUGS (7)
  1. PRILOSEC [Suspect]
     Active Substance: OMEPRAZOLE MAGNESIUM
     Indication: GASTROOESOPHAGEAL REFLUX DISEASE
     Dosage: OMEPRAZOLE MAGNESIUM OTC, 20.6 MG DAILY
     Route: 048
     Dates: start: 201402
  2. FAMOTIDINE. [Concomitant]
     Active Substance: FAMOTIDINE
  3. HYDROCODONE [Concomitant]
     Active Substance: HYDROCODONE
     Indication: BACK PAIN
     Dosage: 5/325, 0.5 TAB, AS REQUIRED
     Route: 048
  4. PRILOSEC [Suspect]
     Active Substance: OMEPRAZOLE MAGNESIUM
     Indication: GASTROOESOPHAGEAL REFLUX DISEASE
     Dosage: 1 CAPSULE DAILY
     Route: 048
     Dates: start: 1996, end: 2001
  5. PRILOSEC [Suspect]
     Active Substance: OMEPRAZOLE MAGNESIUM
     Indication: GASTROOESOPHAGEAL REFLUX DISEASE
     Dosage: OMEPRAZOLE PRESCRIPTION, 1 CAPSULE, DAILY
     Route: 048
     Dates: start: 2001, end: 2001
  6. NEXIUM [Suspect]
     Active Substance: ESOMEPRAZOLE MAGNESIUM
     Indication: GASTROOESOPHAGEAL REFLUX DISEASE
     Route: 048
     Dates: start: 2001, end: 201401
  7. COUMADIN [Concomitant]
     Active Substance: WARFARIN SODIUM
     Indication: COAGULOPATHY
     Route: 048
     Dates: start: 2002

REACTIONS (12)
  - Coagulopathy [Unknown]
  - Tremor [Unknown]
  - Spinal osteoarthritis [Unknown]
  - Drug ineffective [Unknown]
  - Cellulitis [Unknown]
  - Post thrombotic syndrome [Unknown]
  - Tachycardia [Unknown]
  - Intentional product misuse [Unknown]
  - Blood pressure increased [Unknown]
  - Urticaria [Unknown]
  - Rash [Unknown]
  - Intervertebral disc protrusion [Unknown]

NARRATIVE: CASE EVENT DATE: 2000
